FAERS Safety Report 23939649 (Version 1)
Quarter: 2024Q2

REPORT INFORMATION
  Report Type: Spontaneous
  Country: US (occurrence: CA)
  Receive Date: 20240605
  Receipt Date: 20240605
  Transmission Date: 20240716
  Serious: No
  Sender: FDA-Public Use
  Company Number: US-TEVA-VS-3200632

PATIENT
  Age: 64 Year
  Sex: Male

DRUGS (1)
  1. FENTANYL [Suspect]
     Active Substance: FENTANYL\FENTANYL CITRATE
     Dosage: STRENGTH: 50 MCG/HR
     Route: 065

REACTIONS (3)
  - Hyperhidrosis [Unknown]
  - Withdrawal syndrome [Unknown]
  - Drug ineffective [Unknown]
